FAERS Safety Report 18214927 (Version 1)
Quarter: 2020Q3

REPORT INFORMATION
  Report Type: Spontaneous
  Country: FR (occurrence: FR)
  Receive Date: 20200831
  Receipt Date: 20200831
  Transmission Date: 20201103
  Serious: Yes (Death, Other)
  Sender: FDA-Public Use
  Company Number: FR-SEATTLE GENETICS-2020SGN03870

PATIENT
  Age: 72 Year
  Sex: Female
  Weight: 55 kg

DRUGS (1)
  1. ADCETRIS [Suspect]
     Active Substance: BRENTUXIMAB VEDOTIN
     Indication: T-CELL LYMPHOMA
     Dosage: 112.5 MILLIGRAM
     Route: 041
     Dates: start: 20200703, end: 20200811

REACTIONS (1)
  - Coma [Fatal]

NARRATIVE: CASE EVENT DATE: 20200811
